FAERS Safety Report 23330416 (Version 6)
Quarter: 2024Q2

REPORT INFORMATION
  Report Type: Spontaneous
  Country: US (occurrence: US)
  Receive Date: 20231222
  Receipt Date: 20240516
  Transmission Date: 20240716
  Serious: Yes (Hospitalization, Other)
  Sender: FDA-Public Use
  Company Number: US-BRISTOL-MYERS SQUIBB COMPANY-2023-185456

PATIENT
  Age: 77 Year
  Sex: Female

DRUGS (1)
  1. REVLIMID [Suspect]
     Active Substance: LENALIDOMIDE
     Indication: Myelodysplastic syndrome
     Dosage: FREQUENCY: QD
     Route: 048

REACTIONS (12)
  - Fatigue [Recovering/Resolving]
  - Haemoglobin decreased [Unknown]
  - Product distribution issue [Unknown]
  - Muscle spasms [Unknown]
  - Diarrhoea [Unknown]
  - Retching [Unknown]
  - Constipation [Unknown]
  - Cardiac valve disease [Unknown]
  - Decreased appetite [Recovering/Resolving]
  - Product dose omission issue [Unknown]
  - Dizziness [Unknown]
  - Tunnel vision [Unknown]

NARRATIVE: CASE EVENT DATE: 20240401
